FAERS Safety Report 7571413-4 (Version None)
Quarter: 2011Q2

REPORT INFORMATION
  Report Type: 
  Country: None (occurrence: None)
  Receive Date: 20110624
  Receipt Date: 20110302
  Transmission Date: 20111010
  Serious: Yes (Hospitalization, Other)
  Sender: FDA-Public Use
  Company Number: PHFR2011GB01655

PATIENT
  Sex: Female

DRUGS (4)
  1. CLOZARIL [Suspect]
     Indication: SCHIZOPHRENIA
     Dosage: 50 MG MANE, 300 MG NOCTE
     Route: 048
     Dates: start: 19970402
  2. REBOXETINE [Suspect]
     Indication: SCHIZOPHRENIA
     Dosage: 6MG MANE 4MG NOCTE
     Route: 048
  3. AMISULPRIDE [Suspect]
     Indication: SCHIZOPHRENIA
     Dosage: 200 MG, BID
     Route: 048
  4. CLARITHROMYCIN [Interacting]
     Indication: LOWER RESPIRATORY TRACT INFECTION
     Dosage: 500 MG, BID
     Dates: end: 20110113

REACTIONS (8)
  - LOWER RESPIRATORY TRACT INFECTION [None]
  - CONFUSIONAL STATE [None]
  - H1N1 INFLUENZA [None]
  - BLOOD PRESSURE INCREASED [None]
  - OXYGEN SATURATION DECREASED [None]
  - HEART RATE INCREASED [None]
  - DRUG INTERACTION [None]
  - DYSPNOEA [None]
